FAERS Safety Report 8457428-2 (Version None)
Quarter: 2012Q2

REPORT INFORMATION
  Report Type: 
  Country: None (occurrence: None)
  Receive Date: 20120621
  Receipt Date: 20120618
  Transmission Date: 20120825
  Serious: Yes (Other)
  Sender: FDA-Public Use
  Company Number: NO-MERCK-1206USA03282

PATIENT
  Age: 80 Year
  Sex: Female

DRUGS (3)
  1. WARFARIN SODIUM [Suspect]
     Route: 065
  2. ASPIRIN [Concomitant]
     Route: 065
  3. ZOCOR [Suspect]
     Route: 048

REACTIONS (2)
  - INTERNATIONAL NORMALISED RATIO INCREASED [None]
  - DRUG INTERACTION [None]
